FAERS Safety Report 6556843-1 (Version None)
Quarter: 2010Q1

REPORT INFORMATION
  Report Type: 
  Country: None (occurrence: None)
  Receive Date: 20100128
  Receipt Date: 20100121
  Transmission Date: 20100710
  Serious: Yes (Hospitalization)
  Sender: FDA-Public Use
  Company Number: PHHO2008JP08643

PATIENT
  Sex: Male
  Weight: 60 kg

DRUGS (26)
  1. NEORAL [Suspect]
     Indication: RENAL TRANSPLANT
     Dosage: 500 MG / DAY
     Route: 048
     Dates: start: 20080519, end: 20080520
  2. NEORAL [Suspect]
     Dosage: 550 MG / DAY
     Route: 048
     Dates: start: 20080525, end: 20080101
  3. NEORAL [Suspect]
     Dosage: 200 MG, DAILY
     Route: 048
  4. NEORAL [Suspect]
     Dosage: 100 MG, DAILY
     Route: 048
     Dates: start: 20080730
  5. NEORAL [Suspect]
     Dosage: 25 MG / DAY
     Route: 048
     Dates: start: 20080819
  6. NEORAL [Suspect]
     Dosage: 100 MG / DAY
     Route: 048
     Dates: start: 20090203
  7. SIMULECT [Suspect]
     Indication: RENAL TRANSPLANT
     Dosage: 20 MG, (DAY 0)
     Route: 042
     Dates: start: 20080521, end: 20080521
  8. SIMULECT [Suspect]
     Dosage: 20 MG, (DAY 4)
     Route: 042
     Dates: start: 20080525, end: 20080525
  9. MYCOPHENOLATE MOFETIL [Suspect]
     Indication: RENAL TRANSPLANT
     Dosage: 500 MG, DAILY
     Route: 048
     Dates: start: 20080522, end: 20080101
  10. MYCOPHENOLATE MOFETIL [Suspect]
     Dosage: 750 MG, DAILY
     Route: 048
     Dates: start: 20080101
  11. MYCOPHENOLATE MOFETIL [Suspect]
     Dosage: 500 MG, DAILY
     Route: 048
  12. MEDROL [Suspect]
     Indication: RENAL TRANSPLANT
     Dosage: 8 MG / DAY
     Route: 048
     Dates: start: 20080620
  13. MEDROL [Suspect]
     Dosage: 4 MG / DAY
     Route: 048
  14. MUCODYNE [Concomitant]
     Indication: PRODUCTIVE COUGH
     Dosage: UNK
  15. ROCALTROL [Concomitant]
     Indication: HYPERPARATHYROIDISM
     Dosage: UNK
  16. PARIET [Concomitant]
     Indication: GASTRIC ULCER
     Dosage: UNK
  17. URINORM [Concomitant]
     Indication: HYPERURICAEMIA
     Dosage: UNK
  18. FUNGIZONE [Concomitant]
     Indication: INFECTION PROPHYLAXIS
     Dosage: UNK
  19. ALLOID [Concomitant]
     Dosage: UNK
  20. CALCIUM LACTATE [Concomitant]
     Indication: HYPERPARATHYROIDISM
     Dosage: UNK
  21. BAKTAR [Concomitant]
     Indication: INFECTION PROPHYLAXIS
     Dosage: UNK
  22. ZOVIRAX [Concomitant]
     Indication: INFECTION PROPHYLAXIS
     Dosage: UNK
  23. ALOSENN [Concomitant]
     Indication: CONSTIPATION
     Dosage: UNK
  24. NORVASC [Concomitant]
     Indication: RENAL HYPERTENSION
     Dosage: UNK
  25. ISODINE [Concomitant]
     Indication: INFECTION PROPHYLAXIS
     Dosage: UNK
  26. MYSLEE [Concomitant]
     Indication: INSOMNIA
     Dosage: UNK

REACTIONS (11)
  - ABDOMINAL PAIN UPPER [None]
  - CYTOMEGALOVIRUS INFECTION [None]
  - GASTRITIS [None]
  - GASTROENTERITIS VIRAL [None]
  - HAEMATURIA [None]
  - HIATUS HERNIA [None]
  - LUNG CONSOLIDATION [None]
  - LUNG DISORDER [None]
  - NAUSEA [None]
  - PNEUMONIA CYTOMEGALOVIRAL [None]
  - PYREXIA [None]
